FAERS Safety Report 25874198 (Version 1)
Quarter: 2025Q4

REPORT INFORMATION
  Report Type: Spontaneous
  Country: EU (occurrence: EU)
  Receive Date: 20251002
  Receipt Date: 20251002
  Transmission Date: 20260117
  Serious: Yes (Death, Hospitalization, Other)
  Sender: BAUSCH AND LOMB
  Company Number: EU-002147023-NVSC2025IT145207

PATIENT
  Age: 48 Year
  Sex: Female
  Weight: 60 kg

DRUGS (17)
  1. DEXAMETHASONE [Suspect]
     Active Substance: DEXAMETHASONE
     Indication: B-cell type acute leukaemia
     Dosage: 4 MG, BID
     Route: 065
     Dates: start: 20250729, end: 20250910
  2. DEXAMETHASONE [Suspect]
     Active Substance: DEXAMETHASONE
     Indication: Malignant neoplasm progression
     Dosage: DOSE RE-INTRODUCED
     Route: 065
  3. ASCIMINIB [Suspect]
     Active Substance: ASCIMINIB
     Indication: B-cell type acute leukaemia
     Dosage: 40 MG, BID (LAST DOSE TAKEN PRIOR TO AE ON 14 JUL 2025)
     Route: 048
     Dates: start: 20250204
  4. ASCIMINIB [Suspect]
     Active Substance: ASCIMINIB
     Dosage: 80 MG, BID
     Route: 048
     Dates: start: 20250616, end: 20250805
  5. PONATINIB [Suspect]
     Active Substance: PONATINIB
     Indication: B-cell type acute leukaemia
     Dosage: 15 MG QD
     Route: 065
     Dates: start: 20250204, end: 20250805
  6. PONATINIB [Suspect]
     Active Substance: PONATINIB
     Dosage: DOSE RE-INTRODUCED
     Route: 065
  7. VINCRISTINE [Suspect]
     Active Substance: VINCRISTINE
     Indication: B-cell type acute leukaemia
     Dosage: 1 DOSAGE FORM (1 MG)
     Route: 065
     Dates: start: 20250822, end: 20250910
  8. VINCRISTINE [Suspect]
     Active Substance: VINCRISTINE
     Indication: Disease progression
     Dosage: DOSE RE-INTRODUCED
     Route: 065
  9. PIPERACILLIN [Concomitant]
     Active Substance: PIPERACILLIN
     Indication: Product used for unknown indication
     Dosage: UNK
     Route: 065
     Dates: start: 20250908, end: 20250910
  10. PIPERACILLIN [Concomitant]
     Active Substance: PIPERACILLIN
     Dosage: DOSE RE-INTRODUCED
     Route: 065
  11. TAZOBACTAM [Concomitant]
     Active Substance: TAZOBACTAM
     Indication: Product used for unknown indication
     Dosage: UNK
     Route: 065
     Dates: start: 20250908, end: 20250910
  12. TAZOBACTAM [Concomitant]
     Active Substance: TAZOBACTAM
     Dosage: DOSE RE-INTRODUCED
     Route: 065
  13. VANCOMYCIN [Concomitant]
     Active Substance: VANCOMYCIN
     Indication: Product used for unknown indication
     Dosage: 1 DOSAGE FORM
     Route: 065
     Dates: start: 20250910
  14. AMIKACIN [Concomitant]
     Active Substance: AMIKACIN
     Indication: Product used for unknown indication
     Dosage: UNK
     Route: 065
     Dates: start: 20250908, end: 20250910
  15. AMIKACIN [Concomitant]
     Active Substance: AMIKACIN
     Dosage: DOSE RE-INTRODUCED
     Route: 065
  16. AMPHOTERICIN B [Concomitant]
     Active Substance: AMPHOTERICIN B
     Indication: Product used for unknown indication
     Dosage: LIPOSOMAL , UNK
     Route: 065
     Dates: start: 20250909, end: 20250910
  17. AMPHOTERICIN B [Concomitant]
     Active Substance: AMPHOTERICIN B
     Dosage: DOSE RE-INTRODUCED
     Route: 065

REACTIONS (7)
  - Pneumonia [Fatal]
  - Febrile neutropenia [Fatal]
  - Respiratory failure [Fatal]
  - Pancytopenia [Unknown]
  - B-cell type acute leukaemia [Unknown]
  - Malignant neoplasm progression [Unknown]
  - Loss of therapeutic response [Unknown]

NARRATIVE: CASE EVENT DATE: 20250728
